FAERS Safety Report 7303360-7 (Version None)
Quarter: 2011Q1

REPORT INFORMATION
  Report Type: 
  Country: None (occurrence: None)
  Receive Date: 20110221
  Receipt Date: 20110214
  Transmission Date: 20110831
  Serious: Yes (Life-Threatening, Hospitalization)
  Sender: FDA-Public Use
  Company Number: JP-NOVOPROD-321302

PATIENT
  Age: 45 Year
  Sex: Female
  Weight: 40 kg

DRUGS (1)
  1. NOVORAPID CHU FLEXPEN [Suspect]
     Indication: OFF LABEL USE
     Dosage: 900 IU, QD
     Route: 058
     Dates: start: 20101208, end: 20101208

REACTIONS (3)
  - INTENTIONAL DRUG MISUSE [None]
  - HYPOGLYCAEMIC COMA [None]
  - SUICIDE ATTEMPT [None]
